FAERS Safety Report 5415272-4 (Version None)
Quarter: 2007Q3

REPORT INFORMATION
  Report Type: 
  Country: None (occurrence: None)
  Receive Date: 20070815
  Receipt Date: 20070807
  Transmission Date: 20080115
  Serious: Yes (Hospitalization)
  Sender: FDA-Public Use
  Company Number: US-AMGEN-US227789

PATIENT
  Sex: Female

DRUGS (23)
  1. PANITUMUMAB [Suspect]
     Indication: COLORECTAL CANCER
     Route: 042
     Dates: start: 20070424
  2. FLUOROURACIL [Suspect]
     Route: 042
  3. IRINOTECAN HCL [Suspect]
     Route: 042
  4. MS CONTIN [Concomitant]
     Route: 065
  5. PHENERGAN HCL [Concomitant]
     Route: 065
  6. MYCELEX [Concomitant]
     Route: 065
  7. LEXAPRO [Concomitant]
     Route: 065
  8. FOLIC ACID [Concomitant]
     Route: 065
  9. RESTORIL [Concomitant]
     Route: 065
  10. LORTAB [Concomitant]
     Route: 065
  11. QUESTRAN [Concomitant]
     Route: 065
  12. LOMOTIL [Concomitant]
     Route: 065
  13. LEVSIN [Concomitant]
     Route: 065
  14. PROTONIX [Concomitant]
     Route: 065
  15. TUMS [Concomitant]
     Route: 065
  16. FOSAMAX [Concomitant]
     Route: 065
  17. DUONEB [Concomitant]
     Route: 065
  18. PYRIDOXINE HCL [Concomitant]
     Route: 065
  19. REGLAN [Concomitant]
     Route: 065
  20. KYTRIL [Concomitant]
     Route: 065
  21. ACYCLOVIR [Concomitant]
     Route: 065
  22. ROXANOL [Concomitant]
     Route: 065
  23. DOXYCYCLINE [Concomitant]
     Route: 065

REACTIONS (2)
  - DEHYDRATION [None]
  - HYPOKALAEMIA [None]
